FAERS Safety Report 4900994-1 (Version None)
Quarter: 2006Q1

REPORT INFORMATION
  Report Type: 
  Country: None (occurrence: None)
  Receive Date: 20060201
  Receipt Date: 20060123
  Transmission Date: 20060701
  Serious: Yes (Death, Hospitalization)
  Sender: FDA-Public Use
  Company Number: FR_050907165

PATIENT
  Age: 71 Year
  Sex: Male
  Weight: 66 kg

DRUGS (11)
  1. ALIMTA [Suspect]
     Indication: NON-SMALL CELL LUNG CANCER
     Dosage: 500 MG/M2, OTHER, INTRAVENOUS
     Route: 042
     Dates: start: 20050908
  2. FOLIC ACID [Concomitant]
  3. VITAMIN B12 [Concomitant]
  4. DEXAMETHASONE [Concomitant]
  5. NEULASTA [Concomitant]
  6. SOLU-MEDROL [Concomitant]
  7. DIGOXINE (DIGOXIN) TABLET [Concomitant]
  8. CREON [Concomitant]
  9. NEURONTIN [Concomitant]
  10. RIVOTRIL /NOR/ (CLONAZEPAM) DROPS [Concomitant]
  11. XATRAL - SLOW RELEASE (ALFUZOSIN HYDROCHLORIDE) [Concomitant]

REACTIONS (8)
  - BONE MARROW FAILURE [None]
  - C-REACTIVE PROTEIN INCREASED [None]
  - CATHETER RELATED INFECTION [None]
  - MULTI-ORGAN FAILURE [None]
  - NEUTROPENIA [None]
  - PSEUDOMONAL SEPSIS [None]
  - SEPTIC SHOCK [None]
  - STAPHYLOCOCCAL SEPSIS [None]
